FAERS Safety Report 5137567-4 (Version None)
Quarter: 2006Q4

REPORT INFORMATION
  Report Type: 
  Country: None (occurrence: None)
  Receive Date: 20061030
  Receipt Date: 20051121
  Transmission Date: 20070319
  Serious: No
  Sender: FDA-Public Use
  Company Number: US-GLAXOSMITHKLINE-A0583408A

PATIENT
  Age: 85 Year
  Sex: Male

DRUGS (5)
  1. ADVAIR HFA [Suspect]
     Indication: ASTHMA
     Dosage: 3PUFF PER DAY
     Route: 055
  2. WATER PILL [Concomitant]
  3. ALBUTEROL [Concomitant]
  4. LANOXIN [Concomitant]
  5. ALLEGRA [Concomitant]

REACTIONS (1)
  - ADVERSE EVENT [None]
